FAERS Safety Report 6720042-0 (Version None)
Quarter: 2010Q2

REPORT INFORMATION
  Report Type: 
  Country: None (occurrence: None)
  Receive Date: 20100506
  Receipt Date: 20100425
  Transmission Date: 20101027
  Serious: Yes (Hospitalization, Other)
  Sender: FDA-Public Use
  Company Number: 010127

PATIENT
  Sex: Female
  Weight: 55 kg

DRUGS (2)
  1. KEPPRA [Suspect]
     Dosage: ORAL
     Route: 048
  2. UNKNOWN (NON-CLASSIFIED DRUG FOR HUMAN USE) [Suspect]
     Dosage: ORAL
     Route: 048

REACTIONS (5)
  - ACCIDENTAL EXPOSURE [None]
  - DISORIENTATION [None]
  - HYPERTENSIVE CRISIS [None]
  - HYPERTONIA [None]
  - MUSCLE SPASMS [None]
